FAERS Safety Report 19010809 (Version 1)
Quarter: 2021Q1

REPORT INFORMATION
  Report Type: Spontaneous
  Country: US (occurrence: US)
  Receive Date: 20210315
  Receipt Date: 20210315
  Transmission Date: 20210420
  Serious: Yes (Hospitalization, Other)
  Sender: FDA-Public Use
  Company Number: US-UPSHER-SMITH LABORATORIES, LLC-2021USL00164

PATIENT
  Sex: Male

DRUGS (2)
  1. PREDNISONE. [Suspect]
     Active Substance: PREDNISONE
     Indication: PULMONARY FIBROSIS
  2. AMIODARONE HYDROCHLORIDE. [Suspect]
     Active Substance: AMIODARONE HYDROCHLORIDE
     Indication: ATRIAL FIBRILLATION
     Dosage: UNK
     Route: 048
     Dates: start: 201602

REACTIONS (9)
  - Acute pulmonary oedema [Unknown]
  - Pneumonia [Unknown]
  - Haemoptysis [Unknown]
  - Sepsis [Unknown]
  - Pulmonary fibrosis [Unknown]
  - Unevaluable event [Unknown]
  - Peripheral swelling [Unknown]
  - Confusional state [Unknown]
  - Off label use [Unknown]

NARRATIVE: CASE EVENT DATE: 201602
